FAERS Safety Report 11457407 (Version 1)
Quarter: 2015Q3

REPORT INFORMATION
  Report Type: Spontaneous
  Country: US (occurrence: None)
  Receive Date: 20150903
  Receipt Date: 20150903
  Transmission Date: 20151125
  Serious: Yes (Hospitalization)
  Sender: FDA-Public Use
  Company Number: None

PATIENT
  Age: 65 Year
  Sex: Female
  Weight: 81.72 kg

DRUGS (2)
  1. RITUXIMAB (MOAB C2B8 ANTI CD20, CHIMERIC) [Suspect]
     Active Substance: RITUXIMAB
     Dates: end: 20150805
  2. BENDAMUSTINE HYDROCHLORIDE [Suspect]
     Active Substance: BENDAMUSTINE HYDROCHLORIDE
     Dates: end: 20150806

REACTIONS (12)
  - Pain in extremity [None]
  - Nausea [None]
  - Pyrexia [None]
  - Hypertension [None]
  - Respiratory distress [None]
  - Pulmonary embolism [None]
  - Tachycardia [None]
  - Abdominal pain [None]
  - Atelectasis [None]
  - Dyspnoea [None]
  - Hypoxia [None]
  - Pneumonia [None]

NARRATIVE: CASE EVENT DATE: 20150818
